FAERS Safety Report 7198557-3 (Version None)
Quarter: 2010Q4

REPORT INFORMATION
  Report Type: 
  Country: None (occurrence: None)
  Receive Date: 20101203
  Receipt Date: 20101128
  Transmission Date: 20110411
  Serious: Yes (Other)
  Sender: FDA-Public Use
  Company Number: 2010SP050416

PATIENT
  Sex: Male

DRUGS (4)
  1. INTRON A [Suspect]
     Indication: PRODUCT USED FOR UNKNOWN INDICATION
     Dosage: 30 MIU;IV ; 25 MIU ; 20 MIU;TIW
     Dates: start: 20100427
  2. INTRON A [Suspect]
     Indication: PRODUCT USED FOR UNKNOWN INDICATION
     Dosage: 30 MIU;IV ; 25 MIU ; 20 MIU;TIW
     Dates: start: 20100503
  3. INTRON A [Suspect]
     Indication: PRODUCT USED FOR UNKNOWN INDICATION
     Dosage: 30 MIU;IV ; 25 MIU ; 20 MIU;TIW
     Dates: start: 20100506
  4. INTRON A [Suspect]
     Indication: PRODUCT USED FOR UNKNOWN INDICATION
     Dosage: 30 MIU;IV ; 25 MIU ; 20 MIU;TIW
     Dates: start: 20100725

REACTIONS (16)
  - BLOOD PRESSURE FLUCTUATION [None]
  - CHILLBLAINS [None]
  - CHILLS [None]
  - DIARRHOEA [None]
  - DIZZINESS POSTURAL [None]
  - DYSGEUSIA [None]
  - ERECTILE DYSFUNCTION [None]
  - FATIGUE [None]
  - HEADACHE [None]
  - LIBIDO DECREASED [None]
  - LOSS OF CONSCIOUSNESS [None]
  - NAUSEA [None]
  - PAIN [None]
  - RAYNAUD'S PHENOMENON [None]
  - ROAD TRAFFIC ACCIDENT [None]
  - WHITE BLOOD CELL COUNT DECREASED [None]
